FAERS Safety Report 8341004-6 (Version None)
Quarter: 2012Q2

REPORT INFORMATION
  Report Type: 
  Country: None (occurrence: None)
  Receive Date: 20120507
  Receipt Date: 20050817
  Transmission Date: 20120825
  Serious: Yes (Death, Other)
  Sender: FDA-Public Use
  Company Number: FR-ROCHE-GNE216984

PATIENT
  Sex: Female

DRUGS (9)
  1. IFOSFAMIDE [Suspect]
     Indication: B-CELL LYMPHOMA
     Dosage: 10000 MG, UNK
     Dates: start: 20050623, end: 20050803
  2. ZOFRAN [Concomitant]
     Indication: PRODUCT USED FOR UNKNOWN INDICATION
     Dosage: 8 MG, UNK
     Dates: start: 20050802, end: 20050806
  3. METOCLOPRAMIDE [Concomitant]
     Indication: PRODUCT USED FOR UNKNOWN INDICATION
     Dates: start: 20050802, end: 20050806
  4. LENOGRASTIM [Suspect]
     Indication: PRODUCT USED FOR UNKNOWN INDICATION
  5. MABTHERA [Suspect]
     Indication: B-CELL LYMPHOMA
     Dosage: 750 MG, UNK
     Dates: start: 20050622, end: 20050802
  6. ETOPOSIDE [Suspect]
     Indication: B-CELL LYMPHOMA
     Dosage: 200 MG, DAYS 1-3 OF CYCLE
     Dates: start: 20050622, end: 20050805
  7. SOLU-MEDROL [Concomitant]
     Indication: PRODUCT USED FOR UNKNOWN INDICATION
     Dosage: UNK, UNK
     Dates: start: 20050802, end: 20050806
  8. CARBOPLATIN [Suspect]
     Indication: B-CELL LYMPHOMA
     Dosage: 800 MG, UNK
     Dates: start: 20050623, end: 20050803
  9. MABTHERA [Suspect]
     Dosage: 690 MG, UNK
     Dates: start: 20050802, end: 20050802

REACTIONS (4)
  - BONE MARROW FAILURE [None]
  - TACHYCARDIA [None]
  - CARDIO-RESPIRATORY ARREST [None]
  - SEPTIC SHOCK [None]
